FAERS Safety Report 6540981-3 (Version None)
Quarter: 2010Q1

REPORT INFORMATION
  Report Type: 
  Country: None (occurrence: None)
  Receive Date: 20100118
  Receipt Date: 20100106
  Transmission Date: 20100710
  Serious: Yes (Other)
  Sender: FDA-Public Use
  Company Number: PHHY2010CA00907

PATIENT
  Sex: Male

DRUGS (1)
  1. CLOZARIL [Suspect]
     Dosage: UNK
     Dates: start: 20091207, end: 20091228

REACTIONS (3)
  - MYOCARDIAL INFARCTION [None]
  - MYOCARDITIS [None]
  - VENTRICULAR HYPOKINESIA [None]
